FAERS Safety Report 10308099 (Version 4)
Quarter: 2014Q3

REPORT INFORMATION
  Report Type: Spontaneous
  Country: US (occurrence: US)
  Receive Date: 20140716
  Receipt Date: 20140926
  Transmission Date: 20150326
  Serious: Yes (Death, Hospitalization, Disabling)
  Sender: FDA-Public Use
  Company Number: US-JNJFOC-20140703246

PATIENT
  Age: 64 Year
  Sex: Male
  Weight: 117.94 kg

DRUGS (5)
  1. DURAGESIC [Suspect]
     Active Substance: FENTANYL
     Indication: ARTHRALGIA
     Route: 062
     Dates: end: 2004
  2. ASPIRIN. [Suspect]
     Active Substance: ASPIRIN
     Indication: ARTHRALGIA
     Dosage: 2 TABS OF 40, 3 TIMES
     Route: 048
     Dates: start: 20040512, end: 20040514
  3. DURAGESIC [Suspect]
     Active Substance: FENTANYL
     Indication: ARTHRALGIA
     Route: 062
     Dates: start: 2000
  4. MOTRIN [Suspect]
     Active Substance: IBUPROFEN
     Route: 048
  5. MOTRIN [Suspect]
     Active Substance: IBUPROFEN
     Indication: PAIN
     Route: 048

REACTIONS (9)
  - Myocardial infarction [Recovered/Resolved]
  - Renal failure [Recovered/Resolved]
  - Abasia [Recovered/Resolved]
  - Pain [Recovered/Resolved]
  - Pancreatic haemorrhage [Fatal]
  - Pancreatitis acute [Fatal]
  - Drug ineffective [Unknown]
  - Infection [Fatal]
  - Inappropriate schedule of drug administration [Recovered/Resolved]

NARRATIVE: CASE EVENT DATE: 2004
